FAERS Safety Report 9260604 (Version 3)
Quarter: 2013Q2

REPORT INFORMATION
  Report Type: Report from Study
  Country: DE (occurrence: DE)
  Receive Date: 20130429
  Receipt Date: 20130508
  Transmission Date: 20140414
  Serious: Yes (Hospitalization)
  Sender: FDA-Public Use
  Company Number: DE-BRISTOL-MYERS SQUIBB COMPANY-18783191

PATIENT
  Age: 74 Year
  Sex: Male
  Weight: 61 kg

DRUGS (3)
  1. CETUXIMAB [Suspect]
     Indication: NON-SMALL CELL LUNG CANCER
     Dosage: 400MG/M2:09JAN13-09JAN13?ABS DOSE 716MG:UNK- ONG?RECENT DOSE:9TH,21MAR13
     Route: 042
     Dates: start: 20130109
  2. CARBOPLATIN [Suspect]
     Indication: NON-SMALL CELL LUNG CANCER
     Dosage: AUC 5 , ABS 633MG?RECENT DOSE:4TH,21MAR13
     Route: 042
     Dates: start: 20130109
  3. GEMCITABINE [Suspect]
     Indication: NON-SMALL CELL LUNG CANCER
     Dosage: ABS DOSE:2148?RECENT DOSE:6TH,21MAR13
     Route: 042
     Dates: start: 20130109

REACTIONS (1)
  - Dyspnoea [Not Recovered/Not Resolved]
